FAERS Safety Report 9325953 (Version 1)
Quarter: 2013Q2

REPORT INFORMATION
  Report Type: Spontaneous
  Country: MX (occurrence: MX)
  Receive Date: 20130604
  Receipt Date: 20130604
  Transmission Date: 20140414
  Serious: Yes (Hospitalization)
  Sender: FDA-Public Use
  Company Number: MX-ELI_LILLY_AND_COMPANY-MX201301007518

PATIENT
  Age: 29 Year
  Sex: Male

DRUGS (2)
  1. CYMBALTA [Suspect]
     Indication: DEPRESSION
     Dosage: 840 MG, SINGLE
     Dates: start: 20130121
  2. ETHANOL [Concomitant]

REACTIONS (2)
  - Alcohol poisoning [Recovered/Resolved]
  - Intentional overdose [Unknown]
